FAERS Safety Report 5918759-0 (Version None)
Quarter: 2008Q4

REPORT INFORMATION
  Report Type: 
  Country: None (occurrence: None)
  Receive Date: 20081015
  Receipt Date: 20080924
  Transmission Date: 20090506
  Serious: No
  Sender: FDA-Public Use
  Company Number: US-ASTRAZENECA-2008UW15687

PATIENT
  Age: 45 Year
  Sex: Female
  Weight: 79.4 kg

DRUGS (3)
  1. SYMBICORT [Suspect]
     Indication: ASTHMA
     Dosage: 160/4.5 UG
     Route: 055
  2. ZYRTEC [Concomitant]
  3. ZOLOFT [Concomitant]

REACTIONS (2)
  - LARYNGITIS [None]
  - THROAT IRRITATION [None]
